FAERS Safety Report 4356457-8 (Version None)
Quarter: 2004Q2

REPORT INFORMATION
  Report Type: 
  Country: None (occurrence: None)
  Receive Date: 20040507
  Receipt Date: 20040423
  Transmission Date: 20050107
  Serious: Yes (Hospitalization)
  Sender: FDA-Public Use
  Company Number: A01200401912

PATIENT
  Age: 75 Year
  Sex: Male

DRUGS (12)
  1. PLAVIX [Suspect]
     Indication: ACUTE MYOCARDIAL INFARCTION
     Dosage: 75 MG QD
     Route: 048
     Dates: start: 20040301, end: 20040316
  2. LIQUAEMIN INJ [Suspect]
     Indication: ACUTE MYOCARDIAL INFARCTION
     Dosage: FROM 20,000 TO 27,500 UNITS
     Route: 058
     Dates: start: 20040301, end: 20040316
  3. NORVASC [Concomitant]
  4. ENATEC (ENALAPRIL MALEATE) [Concomitant]
  5. OMEPRAZOLE [Concomitant]
  6. PREDNISONE [Concomitant]
  7. ACETYLCYSTEINE [Concomitant]
  8. NITRODERM [Concomitant]
  9. TAZOBAC (PIPERACILLIN) [Concomitant]
  10. MYCOSTATIN [Concomitant]
  11. HALDOL [Concomitant]
  12. SOLU-MEDROL [Concomitant]

REACTIONS (10)
  - ACTIVATED PARTIAL THROMBOPLASTIN TIME PROLONGED [None]
  - CONDITION AGGRAVATED [None]
  - HAEMODIALYSIS [None]
  - HAEMOGLOBIN DECREASED [None]
  - HYPOVOLAEMIC SHOCK [None]
  - PROTHROMBIN TIME RATIO DECREASED [None]
  - RENAL FAILURE [None]
  - RESPIRATORY FAILURE [None]
  - RETROPERITONEAL HAEMATOMA [None]
  - SHOCK HAEMORRHAGIC [None]
